FAERS Safety Report 15836669 (Version 1)
Quarter: 2018Q4

REPORT INFORMATION
  Report Type: Spontaneous
  Country: US (occurrence: US)
  Receive Date: 20181220
  Receipt Date: 20181220
  Transmission Date: 20190205
  Serious: Yes (Hospitalization)
  Sender: FDA-Public Use
  Company Number: None

PATIENT
  Age: 71 Year
  Sex: Male
  Weight: 64.4 kg

DRUGS (3)
  1. NO DRUG NAME [Concomitant]
  2. NIVOLUMAB [Suspect]
     Active Substance: NIVOLUMAB
     Indication: THYROID CANCER
     Dosage: ?          OTHER DOSE:NIVOLUMAB;OTHER FREQUENCY:EVERY 2 WEEKS;?
     Route: 042
     Dates: start: 20181126, end: 20181130
  3. IPILIMUMAB [Suspect]
     Active Substance: IPILIMUMAB
     Dosage: ?          OTHER DOSE:IPILIMUMAB;OTHER FREQUENCY:EVERY 6 WEEKS;?
     Route: 042
     Dates: start: 20181109, end: 20181130

REACTIONS (1)
  - Pneumonitis [None]

NARRATIVE: CASE EVENT DATE: 20181128
